FAERS Safety Report 16916391 (Version 3)
Quarter: 2019Q4

REPORT INFORMATION
  Report Type: Report from Study
  Country: CO (occurrence: CO)
  Receive Date: 20191014
  Receipt Date: 20191031
  Transmission Date: 20200122
  Serious: Yes (Hospitalization)
  Sender: FDA-Public Use
  Company Number: CO-ACTELION-A-NJ2019-196982

PATIENT
  Age: 41 Year
  Sex: Female

DRUGS (3)
  1. VENTAVIS [Suspect]
     Active Substance: ILOPROST
     Indication: PRODUCT USED FOR UNKNOWN INDICATION
     Dosage: UNK
     Route: 055
     Dates: start: 20181220
  2. OPSUMIT [Concomitant]
     Active Substance: MACITENTAN
  3. ADEMPAS [Suspect]
     Active Substance: RIOCIGUAT
     Indication: PULMONARY ARTERIAL HYPERTENSION
     Dosage: 2.5 MG Q8HR
     Route: 065
     Dates: start: 20190108

REACTIONS (6)
  - Pulmonary artery dilatation [Unknown]
  - Angiocardiogram [Unknown]
  - Drug ineffective [Unknown]
  - Bronchiolitis [Unknown]
  - Catheterisation cardiac [Unknown]
  - Dyspnoea [Not Recovered/Not Resolved]

NARRATIVE: CASE EVENT DATE: 201909
